FAERS Safety Report 5007928-2 (Version None)
Quarter: 2006Q2

REPORT INFORMATION
  Report Type: 
  Country: None (occurrence: None)
  Receive Date: 20060518
  Receipt Date: 20060508
  Transmission Date: 20061013
  Serious: Yes (Disabling, Other)
  Sender: FDA-Public Use
  Company Number: PHBS2006GB01527

PATIENT
  Age: 62 Year
  Sex: Male

DRUGS (3)
  1. PROTIUM (PANTOPRAZOLE)20MG [Suspect]
     Indication: GASTROOESOPHAGEAL REFLUX DISEASE
     Dosage: 40 MG/DAY, ORAL
     Route: 048
  2. ASPIRIN [Suspect]
  3. ATENOLOL [Suspect]
     Dosage: 25 MG/DAY

REACTIONS (2)
  - PALPITATIONS [None]
  - VENTRICULAR EXTRASYSTOLES [None]
